FAERS Safety Report 9406001 (Version 7)
Quarter: 2013Q4

REPORT INFORMATION
  Report Type: Spontaneous
  Country: CA (occurrence: CA)
  Receive Date: 20130717
  Receipt Date: 20131009
  Transmission Date: 20140711
  Serious: Yes (Hospitalization)
  Sender: FDA-Public Use
  Company Number: CA-GLAXOSMITHKLINE-A1031792A

PATIENT
  Age: 58 Year
  Sex: Female
  Weight: 65 kg

DRUGS (4)
  1. BENLYSTA [Suspect]
     Indication: SYSTEMIC LUPUS ERYTHEMATOSUS
     Dosage: 650MG SEE DOSAGE TEXT
     Route: 042
     Dates: start: 20130221
  2. CELLCEPT [Suspect]
     Indication: PRODUCT USED FOR UNKNOWN INDICATION
     Dosage: 1.5G TWICE PER DAY
     Route: 065
  3. PLAQUENIL [Concomitant]
     Dosage: 400MG PER DAY
  4. PREDNISONE [Concomitant]
     Dosage: 5MG PER DAY

REACTIONS (9)
  - Progressive multifocal leukoencephalopathy [Recovered/Resolved with Sequelae]
  - JC virus infection [Recovered/Resolved with Sequelae]
  - Infection [Unknown]
  - Aphasia [Unknown]
  - White matter lesion [Unknown]
  - Asthenia [Unknown]
  - Cognitive disorder [Unknown]
  - Leukopenia [Unknown]
  - Lymphopenia [Unknown]
